FAERS Safety Report 6484437-5 (Version None)
Quarter: 2009Q4

REPORT INFORMATION
  Report Type: 
  Country: None (occurrence: None)
  Receive Date: 20091209
  Receipt Date: 20091126
  Transmission Date: 20100525
  Serious: Yes (Other)
  Sender: FDA-Public Use
  Company Number: PHHY2009MX52714

PATIENT
  Age: 60 Year
  Sex: Female

DRUGS (2)
  1. ACLASTA [Suspect]
     Indication: OSTEOPOROSIS
     Dosage: ONE AMPOULE 5 MG/100 ML PER YEAR
     Route: 042
     Dates: start: 20080602
  2. ACTONEL [Concomitant]

REACTIONS (8)
  - BLOOD CALCIUM ABNORMAL [None]
  - CHILLS [None]
  - DISCOMFORT [None]
  - HYPERHIDROSIS [None]
  - LOSS OF CONSCIOUSNESS [None]
  - MALAISE [None]
  - PYREXIA [None]
  - SOMNOLENCE [None]
